FAERS Safety Report 8013108-9 (Version None)
Quarter: 2011Q4

REPORT INFORMATION
  Report Type: 
  Country: None (occurrence: None)
  Receive Date: 20111229
  Receipt Date: 20111228
  Transmission Date: 20120403
  Serious: Yes (Hospitalization)
  Sender: FDA-Public Use
  Company Number: JP-PFIZER INC-2011314387

PATIENT
  Age: 63 Year
  Sex: Male

DRUGS (3)
  1. LYRICA [Suspect]
     Dosage: 25 MG, 3X/DAY
  2. LOXONIN [Suspect]
     Dosage: UNK
  3. OPALMON [Suspect]
     Dosage: UNK

REACTIONS (2)
  - GASTROINTESTINAL HAEMORRHAGE [None]
  - ULCER HAEMORRHAGE [None]
